FAERS Safety Report 11441417 (Version 1)
Quarter: 2015Q3

REPORT INFORMATION
  Report Type: Report from Study
  Country: SE (occurrence: SE)
  Receive Date: 20150901
  Receipt Date: 20150901
  Transmission Date: 20151125
  Serious: Yes (Hospitalization)
  Sender: FDA-Public Use
  Company Number: SE-UNITED THERAPEUTICS LTD.-UTC-001200

PATIENT
  Age: 49 Year
  Sex: Female
  Weight: 67.5 kg

DRUGS (6)
  1. TRACLEER [Suspect]
     Active Substance: BOSENTAN
     Indication: PULMONARY ARTERIAL HYPERTENSION
     Route: 048
     Dates: start: 20070426
  2. UT-15C SR [Suspect]
     Active Substance: TREPROSTINIL DIOLAMINE
     Indication: PULMONARY ARTERIAL HYPERTENSION
  3. REVATIO [Suspect]
     Active Substance: SILDENAFIL CITRATE
     Indication: PULMONARY ARTERIAL HYPERTENSION
     Route: 048
     Dates: start: 20070427
  4. FURIX [Concomitant]
     Active Substance: FUROSEMIDE
     Indication: OEDEMA
     Route: 048
     Dates: start: 2007
  5. SPIRONOLACTON [Concomitant]
     Active Substance: SPIRONOLACTONE
     Indication: OEDEMA
     Dates: start: 2007
  6. UT-15C SR [Suspect]
     Active Substance: TREPROSTINIL DIOLAMINE
     Route: 048
     Dates: start: 20100310

REACTIONS (1)
  - Pyrexia [Recovered/Resolved]

NARRATIVE: CASE EVENT DATE: 20100621
